FAERS Safety Report 7405755-X (Version None)
Quarter: 2011Q2

REPORT INFORMATION
  Report Type: 
  Country: None (occurrence: None)
  Receive Date: 20110411
  Receipt Date: 20110330
  Transmission Date: 20111010
  Serious: Yes (Hospitalization)
  Sender: FDA-Public Use
  Company Number: JP-ROCHE-736706

PATIENT
  Sex: Female
  Weight: 42 kg

DRUGS (14)
  1. DIPYRIDAMOLE [Concomitant]
     Dosage: DOSAGE IS UNCERTAIN.
  2. PREDNISOLONE [Concomitant]
  3. TACROLIMUS HYDRATE [Concomitant]
     Dosage: DOSE DECREASED.
     Route: 065
  4. METHYLPREDNISOLONE SODIUM SUCCINATE [Concomitant]
     Dosage: DOSAGE IS UNCERTAIN.
     Route: 041
  5. CELLCEPT [Suspect]
     Dosage: DOSE DECREASED
     Route: 048
  6. CELLCEPT [Suspect]
     Route: 048
  7. CELLCEPT [Suspect]
     Route: 048
  8. CYCLOSPORINE [Concomitant]
  9. AZATHIOPRINE [Concomitant]
     Route: 048
  10. TACROLIMUS HYDRATE [Concomitant]
     Route: 065
  11. IMIDAPRIL HYDROCHLORIDE [Concomitant]
     Dosage: FORM: PERORAL AGENT
     Route: 048
  12. CYCLOPHOSPHAMIDE [Concomitant]
     Route: 041
  13. METHYLPREDNISOLONE [Concomitant]
     Route: 065
  14. DIOVAN [Concomitant]
     Dosage: PERORAL AGENT
     Route: 048

REACTIONS (3)
  - DIARRHOEA [None]
  - NAUSEA [None]
  - HISTIOCYTOSIS HAEMATOPHAGIC [None]
